FAERS Safety Report 5700889-X (Version None)
Quarter: 2008Q2

REPORT INFORMATION
  Report Type: 
  Country: None (occurrence: None)
  Receive Date: 20080410
  Receipt Date: 20080408
  Transmission Date: 20081010
  Serious: Yes (Hospitalization)
  Sender: FDA-Public Use
  Company Number: A0718433A

PATIENT
  Age: 88 Year
  Sex: Male
  Weight: 77.2 kg

DRUGS (3)
  1. ROSIGLITAZONE [Suspect]
     Dosage: 8MG PER DAY
     Route: 048
     Dates: start: 20071005
  2. TOPROL-XL [Concomitant]
     Dosage: 25MG PER DAY
     Route: 048
     Dates: start: 20050101
  3. LIPITOR [Concomitant]
     Indication: BLOOD CHOLESTEROL INCREASED
     Dosage: 20MG PER DAY
     Route: 048
     Dates: start: 20050101

REACTIONS (2)
  - ARRHYTHMIA SUPRAVENTRICULAR [None]
  - LUNG NEOPLASM [None]
